FAERS Safety Report 12843904 (Version 1)
Quarter: 2016Q4

REPORT INFORMATION
  Report Type: Report from Study
  Country: US (occurrence: US)
  Receive Date: 20161013
  Receipt Date: 20161013
  Transmission Date: 20170207
  Serious: No
  Sender: FDA-Public Use
  Company Number: US-AMGEN-USASL2016140557

PATIENT
  Age: 54 Year
  Sex: Male

DRUGS (2)
  1. ENBREL [Suspect]
     Active Substance: ETANERCEPT
     Indication: PSORIASIS
     Dosage: UNK, TWO INJECTIONS A WEEK
     Route: 065
  2. ENBREL [Suspect]
     Active Substance: ETANERCEPT
     Dosage: UNK UNK, ONCE WEEKLY
     Route: 065
     Dates: start: 201601

REACTIONS (3)
  - Pruritus [Unknown]
  - Drug effect incomplete [Unknown]
  - Skin plaque [Unknown]

NARRATIVE: CASE EVENT DATE: 2016
